FAERS Safety Report 17091945 (Version 2)
Quarter: 2020Q1

REPORT INFORMATION
  Report Type: Report from Study
  Country: CA (occurrence: CA)
  Receive Date: 20191129
  Receipt Date: 20200213
  Transmission Date: 20200409
  Serious: Yes (Hospitalization, Other)
  Sender: FDA-Public Use
  Company Number: CA-PFIZER INC-2019515469

PATIENT
  Age: 70 Year
  Sex: Female
  Weight: 57 kg

DRUGS (27)
  1. CANNABIS SATIVA [Concomitant]
     Active Substance: CANNABIS SATIVA FLOWERING TOP
     Indication: NAUSEA
     Dosage: 0.5 ML, 1X/DAY
     Route: 048
     Dates: start: 20170323, end: 20170403
  2. LEVAQUIN [Concomitant]
     Active Substance: LEVOFLOXACIN
     Indication: PNEUMONITIS
     Dosage: 500 MG, UNK
     Dates: start: 20170402, end: 20170402
  3. AROMASIN [Suspect]
     Active Substance: EXEMESTANE
     Dosage: 10 MG, UNK
     Dates: start: 20170126, end: 20170324
  4. AFINITOR [Suspect]
     Active Substance: EVEROLIMUS
     Indication: BREAST CANCER METASTATIC
     Dosage: 10 MG, UNK
     Route: 048
     Dates: start: 20170126, end: 20170324
  5. CLINDOXYL [Concomitant]
     Active Substance: BENZOYL PEROXIDE\CLINDAMYCIN PHOSPHATE
     Indication: RASH
     Dosage: 1 UNK, UNK
     Dates: start: 20170303, end: 201704
  6. NOVORAPID [Concomitant]
     Active Substance: INSULIN ASPART
     Dosage: 10 OT, UNK
  7. PANTOPRAZOLE [Concomitant]
     Active Substance: PANTOPRAZOLE
     Indication: PROPHYLAXIS
     Dosage: 40 MG, UNK
     Dates: start: 20170403, end: 20170504
  8. VITAMIN B COMPLEX [Concomitant]
     Active Substance: CYANOCOBALAMIN\DEXPANTHENOL\NIACINAMIDE\PYRIDOXINE HYDROCHLORIDE\RIBOFLAVIN 5^-PHOSPHATE SODIUM\THIAMINE HYDROCHLORIDE\VITAMIN B COMPLEX
     Dosage: 1 DF, 3000
  9. PROCHLORPERAZINE. [Concomitant]
     Active Substance: PROCHLORPERAZINE
     Indication: PROPHYLACTIC CHEMOTHERAPY
     Dosage: 8 MG, UNK
     Dates: start: 20170502
  10. CALCIUM GLUCONATE. [Concomitant]
     Active Substance: CALCIUM GLUCONATE
     Indication: SUPPLEMENTATION THERAPY
     Dosage: 1000 MG, UNK
     Dates: start: 2010
  11. LEVAQUIN [Concomitant]
     Active Substance: LEVOFLOXACIN
     Indication: INFECTION
  12. BETADERM [Concomitant]
     Active Substance: BETAMETHASONE VALERATE
     Indication: RASH
     Dosage: 1 DF, UNK
     Dates: start: 20170303, end: 20170330
  13. DIPHENHYDRAMINE. [Concomitant]
     Active Substance: DIPHENHYDRAMINE
     Indication: RASH
     Dosage: 25 MG, UNK
     Dates: start: 20170405, end: 20170406
  14. ERGOCALCIFEROL. [Concomitant]
     Active Substance: ERGOCALCIFEROL
     Indication: SUPPLEMENTATION THERAPY
     Dosage: 4000 IU, UNK
     Dates: start: 2010
  15. AFINITOR [Suspect]
     Active Substance: EVEROLIMUS
     Dosage: 25 MG, UNK
     Route: 048
     Dates: start: 20170126, end: 20170421
  16. DEXAMETHASONE. [Concomitant]
     Active Substance: DEXAMETHASONE
     Indication: PROPHYLACTIC CHEMOTHERAPY
     Dosage: 8 MG, UNK
     Dates: start: 20170502
  17. NORVASC [Concomitant]
     Active Substance: AMLODIPINE BESYLATE
     Indication: PROPHYLAXIS
     Dosage: UNK
     Dates: start: 2005
  18. DALTEPARIN SODIUM [Concomitant]
     Active Substance: DALTEPARIN SODIUM
     Indication: THROMBOSIS PROPHYLAXIS
     Dosage: 5000 DF, UNK
     Dates: start: 20170303, end: 20170406
  19. AMLODIPINE BESILATE [Concomitant]
     Active Substance: AMLODIPINE BESYLATE
     Indication: PROPHYLAXIS
     Dosage: 5 MG, UNK
     Dates: start: 20170403, end: 20170504
  20. AROMASIN [Suspect]
     Active Substance: EXEMESTANE
     Dosage: 25 MG, UNK
     Dates: start: 20170126, end: 20170421
  21. NORVASC [Concomitant]
     Active Substance: AMLODIPINE BESYLATE
     Dosage: 5 MG, UNK
     Dates: start: 20170403, end: 20170504
  22. KEFLEX [Concomitant]
     Active Substance: CEPHALEXIN
     Indication: PARONYCHIA
     Dosage: 250 MG, UNK
     Dates: start: 20170301, end: 20170301
  23. NORVASC [Concomitant]
     Active Substance: AMLODIPINE BESYLATE
     Indication: HYPERTENSION
     Dosage: 40 MG, UNK
  24. LETROZOLE. [Concomitant]
     Active Substance: LETROZOLE
     Dosage: UNK
  25. PREDNISONE. [Concomitant]
     Active Substance: PREDNISONE
     Indication: RASH
     Dosage: 50 MG, UNK
     Dates: start: 20170403, end: 20170423
  26. PREDNISONE. [Concomitant]
     Active Substance: PREDNISONE
     Indication: PNEUMONITIS
     Dosage: 30 MG, UNK
     Dates: start: 20170406, end: 20170423
  27. VITAMIN B12 [Concomitant]
     Active Substance: CYANOCOBALAMIN
     Indication: SUPPLEMENTATION THERAPY
     Dosage: 1000 MG, UNK
     Dates: start: 2010

REACTIONS (17)
  - Pneumonitis [Recovered/Resolved]
  - Fatigue [Recovered/Resolved]
  - Paronychia [Recovered/Resolved]
  - Peripheral sensory neuropathy [Not Recovered/Not Resolved]
  - Gamma-glutamyltransferase increased [Not Recovered/Not Resolved]
  - Aspartate aminotransferase increased [Recovered/Resolved]
  - Alanine aminotransferase increased [Recovered/Resolved]
  - Neoplasm progression [Unknown]
  - Alveolitis [Unknown]
  - Liver function test increased [Recovered/Resolved]
  - Mucosal inflammation [Recovered/Resolved]
  - Diarrhoea [Recovered/Resolved]
  - Hyperglycaemia [Recovered/Resolved]
  - Dyspnoea [Recovered/Resolved]
  - Nausea [Recovered/Resolved]
  - Alopecia [Not Recovered/Not Resolved]
  - Rash [Recovered/Resolved]

NARRATIVE: CASE EVENT DATE: 201702
